FAERS Safety Report 9406304 (Version 3)
Quarter: 2013Q3

REPORT INFORMATION
  Report Type: Spontaneous
  Country: DE (occurrence: DE)
  Receive Date: 20130717
  Receipt Date: 20130819
  Transmission Date: 20140515
  Serious: Yes (Other)
  Sender: FDA-Public Use
  Company Number: DE-009507513-1307DEU006979

PATIENT
  Age: 39 Year
  Sex: Male
  Weight: 66 kg

DRUGS (1)
  1. NASONEX [Suspect]
     Indication: RHINITIS
     Dosage: 2 PUFFS ONE LEFT, ONE RIGHT, BID
     Route: 045
     Dates: start: 20130527, end: 20130610

REACTIONS (5)
  - Visual field defect [Recovered/Resolved]
  - Night blindness [Recovered/Resolved]
  - Eye pain [Recovered/Resolved]
  - Photophobia [Recovered/Resolved]
  - Visual impairment [Recovered/Resolved]
